FAERS Safety Report 19010309 (Version 1)
Quarter: 2021Q1

REPORT INFORMATION
  Report Type: Spontaneous
  Country: US (occurrence: US)
  Receive Date: 20210316
  Receipt Date: 20210316
  Transmission Date: 20210420
  Serious: No
  Sender: FDA-Public Use
  Company Number: US-TEVA-2021-US-1888845

PATIENT
  Age: 69 Year
  Sex: Female

DRUGS (1)
  1. ATENOLOL AND CHLORTALIDONE [Suspect]
     Active Substance: ATENOLOL\CHLORTHALIDONE
     Route: 065

REACTIONS (3)
  - Constipation [Not Recovered/Not Resolved]
  - Product taste abnormal [Unknown]
  - Flatulence [Not Recovered/Not Resolved]

NARRATIVE: CASE EVENT DATE: 2021
